FAERS Safety Report 7597800-6 (Version None)
Quarter: 2011Q3

REPORT INFORMATION
  Report Type: 
  Country: None (occurrence: None)
  Receive Date: 20110708
  Receipt Date: 20110620
  Transmission Date: 20111222
  Serious: No
  Sender: FDA-Public Use
  Company Number: US-B.I. PHARMACEUTICALS,INC./RIDGEFIELD-2011-BP-15843BP

PATIENT
  Age: 79 Year
  Sex: Male

DRUGS (2)
  1. MEDICAITON NOT FURTHER SPECIFIED [Concomitant]
     Indication: PROSTATIC DISORDER
     Dates: start: 20110101
  2. ZANTAC 150 [Suspect]
     Indication: DYSPEPSIA
     Dosage: 300 MG
     Route: 048
     Dates: start: 20110601

REACTIONS (1)
  - DYSURIA [None]
